FAERS Safety Report 18053146 (Version 1)
Quarter: 2020Q3

REPORT INFORMATION
  Report Type: Spontaneous
  Country: US (occurrence: US)
  Receive Date: 20200722
  Receipt Date: 20200722
  Transmission Date: 20201103
  Serious: No
  Sender: FDA-Public Use
  Company Number: US-TEVA-2020-US-1803358

PATIENT
  Age: 25 Year
  Sex: Female

DRUGS (1)
  1. AJOVY [Suspect]
     Active Substance: FREMANEZUMAB-VFRM
     Dosage: SPRING 2019
     Route: 065

REACTIONS (4)
  - Speech disorder [Unknown]
  - Aphasia [Unknown]
  - Dysphemia [Unknown]
  - Disorganised speech [Unknown]
